FAERS Safety Report 4269238-0 (Version None)
Quarter: 2004Q1

REPORT INFORMATION
  Report Type: 
  Country: None (occurrence: None)
  Receive Date: 20040113
  Receipt Date: 20040106
  Transmission Date: 20041129
  Serious: Yes (Hospitalization)
  Sender: FDA-Public Use
  Company Number: FR-BRISTOL-MYERS SQUIBB COMPANY-12469763

PATIENT
  Age: 43 Year
  Sex: Male

DRUGS (4)
  1. VIDEX EC [Suspect]
     Indication: HIV INFECTION
     Route: 048
     Dates: start: 20031024, end: 20031102
  2. SUSTIVA [Suspect]
     Indication: HIV INFECTION
     Route: 048
     Dates: start: 20031024, end: 20031102
  3. VIREAD [Suspect]
     Indication: HIV INFECTION
     Route: 048
     Dates: start: 20031024, end: 20031102
  4. VOLTAREN [Suspect]
     Route: 048
     Dates: start: 20031024, end: 20031102

REACTIONS (2)
  - CHOLESTASIS [None]
  - RENAL FAILURE [None]
